FAERS Safety Report 13590955 (Version 1)
Quarter: 2017Q2

REPORT INFORMATION
  Report Type: Spontaneous
  Country: US (occurrence: US)
  Receive Date: 20170530
  Receipt Date: 20170530
  Transmission Date: 20170830
  Serious: Yes (Hospitalization)
  Sender: FDA-Public Use
  Company Number: US-OREXIGEN THERAPEUTICS, INC.-2021341

PATIENT
  Age: 59 Year
  Sex: Female
  Weight: 83.9 kg

DRUGS (2)
  1. CONTRAVE [Suspect]
     Active Substance: BUPROPION HYDROCHLORIDE\NALTREXONE HYDROCHLORIDE
     Indication: OVERWEIGHT
     Route: 065
     Dates: start: 20170501, end: 20170508
  2. CONTRAVE [Suspect]
     Active Substance: BUPROPION HYDROCHLORIDE\NALTREXONE HYDROCHLORIDE
     Route: 065
     Dates: start: 20170508, end: 20170510

REACTIONS (6)
  - Limb discomfort [Recovered/Resolved]
  - Transient ischaemic attack [Recovered/Resolved]
  - Paraesthesia [Recovered/Resolved]
  - Facial paralysis [Recovered/Resolved]
  - Hypoaesthesia [Recovered/Resolved]
  - Blood pressure increased [Recovered/Resolved]

NARRATIVE: CASE EVENT DATE: 20170510
